FAERS Safety Report 25480964 (Version 1)
Quarter: 2025Q2

REPORT INFORMATION
  Report Type: Spontaneous
  Country: US (occurrence: US)
  Receive Date: 20250625
  Receipt Date: 20250625
  Transmission Date: 20250717
  Serious: Yes (Hospitalization)
  Sender: JOHNSON AND JOHNSON
  Company Number: US-JNJFOC-20250628032

PATIENT
  Sex: Female

DRUGS (7)
  1. SPRAVATO [Suspect]
     Active Substance: ESKETAMINE
     Indication: Product used for unknown indication
     Route: 045
  2. SPRAVATO [Suspect]
     Active Substance: ESKETAMINE
     Route: 045
  3. AZATHIOPRINE [Concomitant]
     Active Substance: AZATHIOPRINE
     Indication: Product used for unknown indication
  4. IMURAN [Concomitant]
     Active Substance: AZATHIOPRINE
     Indication: Product used for unknown indication
  5. PREDNISONE [Concomitant]
     Active Substance: PREDNISONE
     Indication: Product used for unknown indication
  6. SALINE [AMMONIUM ACETATE;CAMPHORA OFFICINARUM EXTRACT;SODIUM CITRATE;S [Concomitant]
     Indication: Product used for unknown indication
     Route: 045
  7. DIAPARENE [Concomitant]
     Active Substance: METHYLBENZETHONIUM CHLORIDE
     Indication: Product used for unknown indication

REACTIONS (16)
  - Hospitalisation [Unknown]
  - Sinus disorder [Unknown]
  - Dry eye [Unknown]
  - Dry skin [Unknown]
  - Dental caries [Unknown]
  - Vulvovaginal dryness [Unknown]
  - Biopsy lip [Unknown]
  - Brain fog [Unknown]
  - Impaired driving ability [Unknown]
  - General physical health deterioration [Unknown]
  - Infection [Unknown]
  - Hepatic function abnormal [Unknown]
  - Fatigue [Unknown]
  - Muscular weakness [Unknown]
  - Dry mouth [Unknown]
  - Off label use [Unknown]

NARRATIVE: CASE EVENT DATE: 20240101
